FAERS Safety Report 23294598 (Version 6)
Quarter: 2024Q1

REPORT INFORMATION
  Report Type: Report from Study
  Country: CN (occurrence: CN)
  Receive Date: 20231213
  Receipt Date: 20240215
  Transmission Date: 20240410
  Serious: Yes (Death)
  Sender: FDA-Public Use
  Company Number: CN-DSJP-DSJ-2023-151040

PATIENT
  Age: 71 Year
  Sex: Male
  Weight: 78 kg

DRUGS (5)
  1. EDOXABAN [Suspect]
     Active Substance: EDOXABAN
     Indication: Atrial fibrillation
     Dosage: 60 MG, QD
     Route: 048
     Dates: start: 20211222, end: 20220310
  2. EDOXABAN [Suspect]
     Active Substance: EDOXABAN
     Dosage: 60 MG, QD
     Route: 048
     Dates: start: 20220316, end: 20221117
  3. NUO XIN TUO [Concomitant]
     Indication: Cardiac failure
     Dosage: 100 MG, BID
     Route: 048
     Dates: start: 20210506, end: 2022
  4. SU LI FEI [Concomitant]
     Indication: Anaemia
     Dosage: 0.1 G, TID (SUSTAINED RELEASE TABLET)
     Route: 048
     Dates: start: 202107, end: 2022
  5. ISOSORBIDE MONONITRATE [Concomitant]
     Active Substance: ISOSORBIDE MONONITRATE
     Indication: Arteriosclerosis
     Dosage: 20 MG, BID
     Route: 048
     Dates: start: 20210506, end: 2022

REACTIONS (1)
  - Death [Fatal]

NARRATIVE: CASE EVENT DATE: 20221117
